FAERS Safety Report 22227354 (Version 1)
Quarter: 2023Q2

REPORT INFORMATION
  Report Type: Report from Study
  Country: DE (occurrence: DE)
  Receive Date: 20230419
  Receipt Date: 20230419
  Transmission Date: 20230722
  Serious: Yes (Other)
  Sender: FDA-Public Use
  Company Number: DE-MYLANLABS-2023M1041180

PATIENT
  Age: 54 Year
  Sex: Male

DRUGS (8)
  1. QUETIAPINE [Suspect]
     Active Substance: QUETIAPINE
     Indication: Tremor
     Dosage: UNK
     Route: 065
  2. PRIMIDONE [Suspect]
     Active Substance: PRIMIDONE
     Indication: Tremor
     Dosage: UNK
     Route: 065
  3. RALTEGRAVIR [Concomitant]
     Active Substance: RALTEGRAVIR
     Indication: HIV infection CDC category C
     Dosage: UNK
     Route: 065
  4. STAVUDINE [Concomitant]
     Active Substance: STAVUDINE
     Indication: HIV infection CDC category C
     Dosage: UNK
     Route: 065
  5. NEVIRAPINE [Concomitant]
     Active Substance: NEVIRAPINE
     Indication: HIV infection CDC category C
     Dosage: UNK
     Route: 065
  6. LAMIVUDINE [Concomitant]
     Active Substance: LAMIVUDINE
     Indication: Progressive multifocal leukoencephalopathy
     Dosage: UNK
     Route: 065
  7. TENOFOVIR [Concomitant]
     Active Substance: TENOFOVIR
     Indication: Progressive multifocal leukoencephalopathy
     Dosage: UNK
     Route: 065
  8. EFAVIRENZ [Concomitant]
     Active Substance: EFAVIRENZ
     Indication: Progressive multifocal leukoencephalopathy
     Dosage: UNK
     Route: 065

REACTIONS (2)
  - Drug ineffective for unapproved indication [Unknown]
  - Off label use [Unknown]
